FAERS Safety Report 21395349 (Version 1)
Quarter: 2022Q3

REPORT INFORMATION
  Report Type: Spontaneous
  Country: JP (occurrence: JP)
  Receive Date: 20220930
  Receipt Date: 20220930
  Transmission Date: 20221027
  Serious: Yes (Hospitalization, Other)
  Sender: FDA-Public Use
  Company Number: JP-MSD-M2022-40631

PATIENT
  Age: 5 Decade
  Sex: Male

DRUGS (14)
  1. ISENTRESS [Suspect]
     Active Substance: RALTEGRAVIR POTASSIUM
     Indication: HIV infection
     Dosage: 1200 MILLIGRAM, QD
     Route: 048
  2. DESCOVY [Concomitant]
     Active Substance: EMTRICITABINE\TENOFOVIR ALAFENAMIDE FUMARATE
     Indication: HIV infection
     Dosage: 1 DOSAGE FORM, QD
     Route: 048
  3. ESOMEPRAZOLE MAGNESIUM [Concomitant]
     Active Substance: ESOMEPRAZOLE MAGNESIUM
     Dosage: 1 DOSAGE FORM, QD
     Route: 048
  4. URSODIOL [Concomitant]
     Active Substance: URSODIOL
     Dosage: 6 DOSAGE FORM, TID
     Route: 048
  5. BROTIZOLAM [Concomitant]
     Active Substance: BROTIZOLAM
     Dosage: 1 DOSAGE FORM, QD
     Route: 048
  6. FLUNITRAZEPAM [Concomitant]
     Active Substance: FLUNITRAZEPAM
     Dosage: 1 DOSAGE FORM, QD
     Route: 048
  7. ASCORBIC ACID [Concomitant]
     Active Substance: ASCORBIC ACID
     Dosage: 6 DOSAGE FORM, TID
     Route: 048
  8. METHYLCOBALAMIN [Concomitant]
     Active Substance: METHYLCOBALAMIN
     Dosage: 3 DOSAGE FORM, TID
     Route: 048
  9. LOXOPROFEN SODIUM [Concomitant]
     Active Substance: LOXOPROFEN SODIUM
     Dosage: 3 DOSAGE FORM, TID
     Route: 048
  10. REBAMIPIDE [Concomitant]
     Active Substance: REBAMIPIDE
     Dosage: 3 DOSAGE FORM, TID
     Route: 048
  11. CLOSTRIDIUM BUTYRICUM SPORES STRAIN M-55 [Concomitant]
     Active Substance: CLOSTRIDIUM BUTYRICUM SPORES STRAIN M-55
     Dosage: 3 DOSAGE FORM
     Route: 048
  12. TRANEXAMIC ACID [Concomitant]
     Active Substance: TRANEXAMIC ACID
     Dosage: 6 DOSAGE FORM, TID
     Route: 048
  13. EMICIZUMAB [Concomitant]
     Active Substance: EMICIZUMAB
     Dosage: 90 MILLIGRAM, QW
     Route: 065
  14. ANTIHEMOPHILIC FACTOR HUMAN [Concomitant]
     Active Substance: ANTIHEMOPHILIC FACTOR HUMAN
     Dosage: UNK
     Route: 065

REACTIONS (4)
  - Lupus nephritis [Unknown]
  - Systemic lupus erythematosus [Unknown]
  - Pancytopenia [Unknown]
  - Hypocomplementaemia [Unknown]
